FAERS Safety Report 9884215 (Version 2)
Quarter: 2014Q1

REPORT INFORMATION
  Report Type: Spontaneous
  Country: US (occurrence: US)
  Receive Date: 20140210
  Receipt Date: 20140210
  Transmission Date: 20141002
  Serious: Yes (Other)
  Sender: FDA-Public Use
  Company Number: US-ALLERGAN-1318776US

PATIENT
  Sex: Female

DRUGS (1)
  1. BOTOX [Suspect]
     Indication: BLADDER DISORDER
     Dosage: UNK UNK, SINGLE
     Route: 043
     Dates: start: 20131125, end: 20131125

REACTIONS (4)
  - Injection site pain [Recovering/Resolving]
  - Pain [Unknown]
  - Dry eye [Unknown]
  - Fatigue [Unknown]
